FAERS Safety Report 24126320 (Version 2)
Quarter: 2024Q3

REPORT INFORMATION
  Report Type: Spontaneous
  Country: US (occurrence: US)
  Receive Date: 20240723
  Receipt Date: 20240809
  Transmission Date: 20241016
  Serious: Yes (Other)
  Sender: PFIZER
  Company Number: US-PFIZER INC-202400218798

PATIENT
  Age: 70 Year
  Sex: Female

DRUGS (1)
  1. CLINDAMYCIN HYDROCHLORIDE [Suspect]
     Active Substance: CLINDAMYCIN HYDROCHLORIDE
     Indication: Tooth infection
     Dosage: 150MG CAPSULES; 4 CAPSULES PER DAY
     Dates: start: 20240614, end: 20240618

REACTIONS (16)
  - Rectal haemorrhage [Unknown]
  - Haematochezia [Recovered/Resolved]
  - Diarrhoea [Not Recovered/Not Resolved]
  - Proctalgia [Not Recovered/Not Resolved]
  - Nausea [Not Recovered/Not Resolved]
  - Headache [Not Recovered/Not Resolved]
  - Constipation [Unknown]
  - Abdominal pain upper [Unknown]
  - Anorectal discomfort [Unknown]
  - Chills [Unknown]
  - Dry mouth [Unknown]
  - Anal pruritus [Unknown]
  - Haemorrhoids [Unknown]
  - Weight decreased [Unknown]
  - Faeces hard [Unknown]
  - Off label use [Unknown]

NARRATIVE: CASE EVENT DATE: 20240601
